FAERS Safety Report 12454440 (Version 1)
Quarter: 2016Q2

REPORT INFORMATION
  Report Type: Spontaneous
  Country: US (occurrence: None)
  Receive Date: 20160609
  Receipt Date: 20160609
  Transmission Date: 20160815
  Serious: No
  Sender: FDA-Public Use
  Company Number: None

PATIENT
  Age: 70 Year
  Sex: Female

DRUGS (1)
  1. OXYCONTIN [Suspect]
     Active Substance: OXYCODONE HYDROCHLORIDE
     Indication: ANALGESIC THERAPY
     Route: 048
     Dates: start: 20160531, end: 20160608

REACTIONS (4)
  - Inadequate analgesia [None]
  - Incorrect dose administered [None]
  - Malaise [None]
  - Drug dispensing error [None]

NARRATIVE: CASE EVENT DATE: 20160531
